FAERS Safety Report 9250781 (Version 3)
Quarter: 2015Q4

REPORT INFORMATION
  Report Type: Spontaneous
  Country: US (occurrence: US)
  Receive Date: 20130424
  Receipt Date: 20151012
  Transmission Date: 20160305
  Serious: Yes (Hospitalization)
  Sender: FDA-Public Use
  Company Number: US-BAYER-2013-048872

PATIENT
  Age: 51 Year
  Sex: Female
  Weight: 66.67 kg

DRUGS (7)
  1. YASMIN [Suspect]
     Active Substance: DROSPIRENONE\ETHINYL ESTRADIOL
     Indication: MENORRHAGIA
     Dosage: UNK
     Dates: start: 20110501, end: 20120904
  2. CEFTRIAXONE. [Concomitant]
     Active Substance: CEFTRIAXONE
     Dosage: UNK
     Dates: end: 20120919
  3. YAZ [Suspect]
     Active Substance: DROSPIRENONE\ETHINYL ESTRADIOL
     Indication: MENSTRUATION IRREGULAR
  4. VANCOMYCIN [Concomitant]
     Active Substance: VANCOMYCIN
     Indication: LEUKOCYTOSIS
  5. CIPROFLOXACIN. [Concomitant]
     Active Substance: CIPROFLOXACIN
     Indication: ESCHERICHIA INFECTION
  6. CEFEPIME [Concomitant]
     Active Substance: CEFEPIME HYDROCHLORIDE
     Indication: LEUKOCYTOSIS
  7. BACTRIM [Concomitant]
     Active Substance: SULFAMETHOXAZOLE\TRIMETHOPRIM
     Indication: ESCHERICHIA INFECTION

REACTIONS (16)
  - Cerebrovascular accident [None]
  - Vomiting [None]
  - Diarrhoea [None]
  - Subarachnoid haemorrhage [None]
  - Superior sagittal sinus thrombosis [None]
  - Fatigue [None]
  - Paralysis [None]
  - Transverse sinus thrombosis [None]
  - Intracranial venous sinus thrombosis [None]
  - Cerebral infarction [None]
  - Muscular weakness [None]
  - Aphasia [None]
  - Jugular vein thrombosis [None]
  - Speech disorder [None]
  - Nausea [None]
  - Cerebral ischaemia [None]

NARRATIVE: CASE EVENT DATE: 20120904
